FAERS Safety Report 16900301 (Version 1)
Quarter: 2019Q4

REPORT INFORMATION
  Report Type: Spontaneous
  Country: GB (occurrence: GB)
  Receive Date: 20191009
  Receipt Date: 20191009
  Transmission Date: 20200122
  Serious: Yes (Other)
  Sender: FDA-Public Use
  Company Number: GB-ASTRAZENECA-2019SF39591

PATIENT
  Age: 42 Year
  Sex: Female
  Weight: 88 kg

DRUGS (3)
  1. FOBUMIX [Suspect]
     Active Substance: BUDESONIDE\FORMOTEROL FUMARATE
     Indication: ASTHMA
     Dosage: 160MICROGRAMS/DOSE / 4.5MICROGRAMS/DOSE (2 DF DAILY)
     Route: 055
     Dates: start: 20190426
  2. LAXIDO [Concomitant]
     Active Substance: POLYETHYLENE GLYCOL 3350\POTASSIUM CHLORIDE\SODIUM BICARBONATE\SODIUM CHLORIDE
     Dates: start: 20190426
  3. VENTOLIN [Concomitant]
     Active Substance: ALBUTEROL SULFATE
     Dosage: INHALE ONE OR TWO DOSES WHEN REQUIRED TO RELIEV...
     Route: 055
     Dates: start: 20190426

REACTIONS (4)
  - Chest discomfort [Recovered/Resolved]
  - Product substitution issue [Unknown]
  - Dyspnoea [Recovered/Resolved]
  - Wheezing [Recovered/Resolved]

NARRATIVE: CASE EVENT DATE: 20190913
